FAERS Safety Report 8958267 (Version 3)
Quarter: 2013Q2

REPORT INFORMATION
  Report Type: Spontaneous
  Country: IE (occurrence: IE)
  Receive Date: 20121211
  Receipt Date: 20130529
  Transmission Date: 20140414
  Serious: Yes (Hospitalization, Other)
  Sender: FDA-Public Use
  Company Number: IE-ASTRAZENECA-2012SE92367

PATIENT
  Age: 195 Day
  Sex: Male
  Weight: 7.1 kg

DRUGS (2)
  1. SYNAGIS [Suspect]
     Indication: STRIDOR
     Route: 030
     Dates: start: 20121001
  2. HIN 6 IN 1 [Suspect]
     Route: 065

REACTIONS (7)
  - Adverse drug reaction [Recovered/Resolved]
  - Meningitis [Recovered/Resolved]
  - Gastroenteritis adenovirus [Unknown]
  - Rash [Recovered/Resolved]
  - Pyrexia [Recovered/Resolved]
  - Crying [Recovered/Resolved]
  - Rash generalised [Recovered/Resolved]
